FAERS Safety Report 11730901 (Version 1)
Quarter: 2015Q4

REPORT INFORMATION
  Report Type: Spontaneous
  Country: US (occurrence: US)
  Receive Date: 20151110
  Receipt Date: 20151110
  Transmission Date: 20160304
  Serious: No
  Sender: FDA-Public Use
  Company Number: US-ELI_LILLY_AND_COMPANY-US201202001457

PATIENT
  Age: 61 Year
  Sex: Female

DRUGS (3)
  1. FORTEO [Suspect]
     Active Substance: TERIPARATIDE
     Indication: OSTEOPOROSIS
     Dosage: 20 UG, QD
     Route: 065
     Dates: start: 201201
  2. FORTEO [Suspect]
     Active Substance: TERIPARATIDE
     Dosage: 20 UG, QD
     Dates: end: 20120210
  3. FOSAMAX [Concomitant]
     Active Substance: ALENDRONATE SODIUM

REACTIONS (18)
  - Bone pain [Recovering/Resolving]
  - Fatigue [Recovering/Resolving]
  - Cold sweat [Recovering/Resolving]
  - Asthenia [Recovering/Resolving]
  - Back pain [Unknown]
  - Malaise [Recovering/Resolving]
  - Gait disturbance [Recovering/Resolving]
  - Pyrexia [Recovering/Resolving]
  - Arthralgia [Unknown]
  - Intentional product misuse [Unknown]
  - Pain [Unknown]
  - Influenza like illness [Recovering/Resolving]
  - Feeling abnormal [Unknown]
  - Bone pain [Not Recovered/Not Resolved]
  - Chills [Recovering/Resolving]
  - Hypokinesia [Recovering/Resolving]
  - Bone density decreased [Not Recovered/Not Resolved]
  - Nausea [Recovering/Resolving]

NARRATIVE: CASE EVENT DATE: 201201
